FAERS Safety Report 14574056 (Version 1)
Quarter: 2018Q1

REPORT INFORMATION
  Report Type: Report from Study
  Country: US (occurrence: US)
  Receive Date: 20180226
  Receipt Date: 20180226
  Transmission Date: 20180509
  Serious: No
  Sender: FDA-Public Use
  Company Number: PHEH2018US007664

PATIENT
  Sex: Female

DRUGS (2)
  1. GLEEVEC [Suspect]
     Active Substance: IMATINIB MESYLATE
     Indication: DYSPNOEA
  2. GLEEVEC [Suspect]
     Active Substance: IMATINIB MESYLATE
     Indication: SWELLING
     Route: 065

REACTIONS (3)
  - Swelling [Unknown]
  - Dyspnoea [Unknown]
  - Product use in unapproved indication [Unknown]
